FAERS Safety Report 7981925-7 (Version None)
Quarter: 2011Q4

REPORT INFORMATION
  Report Type: 
  Country: None (occurrence: None)
  Receive Date: 20111215
  Receipt Date: 20111208
  Transmission Date: 20120403
  Serious: Yes (Death, Other)
  Sender: FDA-Public Use
  Company Number: US-BAYER-200940554NA

PATIENT
  Age: 78 Year
  Sex: Male
  Weight: 77.098 kg

DRUGS (55)
  1. TRASYLOL [Suspect]
     Dosage: 200 ML, LOADING DOSE
     Route: 042
     Dates: start: 20060531, end: 20060531
  2. SIMVASTATIN [Concomitant]
     Dosage: DAILY DOSE 80 MG
     Route: 048
  3. PLAVIX [Concomitant]
     Dosage: 75 MG, QD
     Route: 048
  4. PROTONIX [Concomitant]
     Dosage: 40 MG, QD
     Route: 048
  5. VASOPRESSIN [Concomitant]
     Dosage: TITRATED
     Route: 042
     Dates: start: 20060531
  6. PROTAMINE SULFATE [Concomitant]
     Dosage: 300 MG, UNK
     Route: 042
     Dates: start: 20060531
  7. AMICAR [Concomitant]
     Indication: CORONARY ARTERY BYPASS
     Dosage: 10 G, UNK
     Dates: start: 20060527, end: 20060527
  8. LEXAPRO [Concomitant]
     Dosage: 10 MG, QD
     Route: 048
  9. FLUOXETINE [Concomitant]
     Dosage: 10 MG, QD
     Route: 048
  10. BUMEX [Concomitant]
     Dosage: 1 G, UNK
     Route: 042
     Dates: start: 20060531
  11. ETODOLAC [Concomitant]
     Dosage: 300 MG, BID
     Route: 048
  12. AMIODARONE HCL [Concomitant]
     Dosage: TITRATED
     Route: 042
     Dates: start: 20060531
  13. COZAAR [Concomitant]
     Dosage: 50 MG, QD
     Route: 048
  14. RANITIDINE [Concomitant]
     Dosage: 150 MG, BID
     Route: 048
  15. GALANTAMINE HYDROBROMIDE [Concomitant]
     Dosage: 4 MG, BID
     Route: 048
  16. ANCEF [Concomitant]
     Dosage: 1 G, UNK
     Route: 042
     Dates: start: 20060531
  17. VANCOMYCIN [Concomitant]
     Dosage: 1 G, UNK
     Route: 042
     Dates: start: 20060531
  18. VECURONIUM BROMIDE [Concomitant]
     Dosage: 10 MG, UNK
     Route: 042
     Dates: start: 20060531
  19. HEPARIN [Concomitant]
     Dosage: UNK
     Route: 042
     Dates: start: 20060527
  20. ALBUMIN (HUMAN) [Concomitant]
     Dosage: 200 ML, UNK
     Dates: start: 20060531
  21. TRIAMCINOLONE [Concomitant]
     Dosage: PERIODICALLY
     Route: 061
     Dates: start: 20040108
  22. FOLIC ACID [Concomitant]
     Dosage: 1 MG, QD
     Route: 048
  23. ATENOLOL [Concomitant]
     Dosage: DAILY DOSE 50 MG
     Route: 048
  24. ACETYLSALICYLIC ACID SRT [Concomitant]
     Dosage: 81 MG, QD
     Route: 048
  25. MEGESTROL ACETATE [Concomitant]
     Dosage: DAILY DOSE 20 MG
     Route: 048
  26. IBUPROFEN (ADVIL) [Concomitant]
     Dosage: UNK UNK, PRN
  27. METOPROLOL TARTRATE [Concomitant]
     Dosage: 25 MG, QD
     Route: 048
  28. PROZAC [Concomitant]
     Dosage: 10 MG, QD
     Route: 048
  29. OXYBUTYNIN [Concomitant]
     Dosage: 5 MG, TID
     Route: 048
  30. COREG [Concomitant]
     Dosage: 12.5 MG, BID
     Route: 048
  31. RED BLOOD CELLS [Concomitant]
     Dosage: 2 U
     Route: 042
     Dates: start: 20060527
  32. VISIPAQUE [Concomitant]
     Indication: CATHETERISATION CARDIAC
     Dosage: 54 ML, UNK
     Dates: start: 20060527, end: 20060527
  33. VERSED [Concomitant]
     Dosage: UNK
     Route: 042
     Dates: start: 20060527
  34. LASIX [Concomitant]
     Dosage: 40 MG, UNK
     Route: 042
     Dates: start: 20060531
  35. PRIMACOR [Concomitant]
     Dosage: TITRATED
     Route: 042
     Dates: start: 20060531
  36. EPINEPHRINE [Concomitant]
     Dosage: TITRATED
     Route: 042
     Dates: start: 20060531
  37. DEMEROL [Concomitant]
     Dosage: UNK
     Route: 042
     Dates: start: 20060527
  38. TRASYLOL [Suspect]
     Indication: THROMBOEMBOLECTOMY
     Dosage: 200 ML CARDIOPULMONARY BYPASS PRIME
     Route: 042
     Dates: start: 20060531, end: 20060531
  39. ZESTRIL [Concomitant]
     Dosage: 20 MG, QD
     Route: 048
  40. NAPROXEN (ALEVE) [Concomitant]
     Dosage: UNK UNK, PRN
  41. LODINE [Concomitant]
     Dosage: 300 MG, QD
     Route: 048
  42. PEPCID [Concomitant]
     Dosage: 20 MG, UNK
     Route: 042
     Dates: start: 20060531
  43. HEPARIN [Concomitant]
     Dosage: 37000 U, UNK
     Route: 042
     Dates: start: 20060531
  44. CONTRAST MEDIA [Concomitant]
     Indication: CATHETERISATION CARDIAC
     Dosage: UNK
     Dates: start: 20060526
  45. RED BLOOD CELLS [Concomitant]
     Dosage: 3 U, UNK
     Route: 042
     Dates: start: 20060531
  46. PLATELETS [Concomitant]
     Dosage: 2 U, UNK
     Route: 042
     Dates: start: 20060531
  47. IMDUR [Concomitant]
     Dosage: 30 MG, QD
     Route: 048
  48. NAPROXEN [Concomitant]
     Dosage: 250 MG, BID
     Route: 048
  49. INDOCIN [Concomitant]
     Dosage: DAILY DOSE 75 MG
     Route: 048
  50. ZOCOR [Concomitant]
     Dosage: 40 MG, QD
     Route: 048
  51. DECADRON [Concomitant]
     Dosage: 16 MG, UNK
     Route: 042
     Dates: start: 20060531
  52. HEPARIN [Concomitant]
     Dosage: 10,000 UNITS
     Route: 042
     Dates: start: 20060531
  53. FRESH FROZEN PLASMA [Concomitant]
     Dosage: 4 U, UNK
     Route: 042
     Dates: start: 20060531
  54. KENALOG [Concomitant]
     Dosage: PERIODICALLY
     Dates: start: 20050908
  55. TRIDIL [Concomitant]
     Dosage: UNK
     Route: 042
     Dates: start: 20060527

REACTIONS (13)
  - RENAL FAILURE [None]
  - INJURY [None]
  - DEATH [None]
  - EMOTIONAL DISTRESS [None]
  - ANHEDONIA [None]
  - ANXIETY [None]
  - MULTI-ORGAN FAILURE [None]
  - RENAL IMPAIRMENT [None]
  - STRESS [None]
  - FEAR [None]
  - PAIN [None]
  - RENAL INJURY [None]
  - UNEVALUABLE EVENT [None]
